FAERS Safety Report 7303316-4 (Version None)
Quarter: 2011Q1

REPORT INFORMATION
  Report Type: 
  Country: None (occurrence: None)
  Receive Date: 20110221
  Receipt Date: 20110215
  Transmission Date: 20110831
  Serious: Yes (Other)
  Sender: FDA-Public Use
  Company Number: US-TYCO HEALTHCARE/MALLINCKRODT-T201100309

PATIENT
  Sex: Female

DRUGS (10)
  1. PROVENTIL                          /00139501/ [Concomitant]
     Dosage: UNK
  2. TYLENOL (CAPLET) [Concomitant]
     Dosage: UNK
  3. OPTIRAY 350 [Suspect]
     Indication: COMPUTERISED TOMOGRAM
     Dosage: 100 ML, SINGLE
     Route: 042
     Dates: start: 20110126, end: 20110126
  4. OSCAL                              /00108001/ [Concomitant]
     Dosage: UNK
  5. CLARITIN                           /00917501/ [Concomitant]
     Dosage: UNK
  6. FISH OIL [Concomitant]
     Dosage: UNK
  7. OMEPRAZOLE [Concomitant]
     Dosage: UNK
  8. AROMASIN [Concomitant]
     Dosage: UNK
  9. M.V.I. [Concomitant]
     Dosage: UNK
  10. PEPCID [Concomitant]
     Dosage: UNK

REACTIONS (2)
  - CHEST DISCOMFORT [None]
  - SWOLLEN TONGUE [None]
